FAERS Safety Report 8620984-5 (Version None)
Quarter: 2012Q3

REPORT INFORMATION
  Report Type: 
  Country: None (occurrence: None)
  Receive Date: 20120824
  Receipt Date: 20120820
  Transmission Date: 20120928
  Serious: Yes (Hospitalization)
  Sender: FDA-Public Use
  Company Number: AU-ELI_LILLY_AND_COMPANY-AU201208005744

PATIENT
  Sex: Male

DRUGS (4)
  1. LIPID MODIFYING AGENTS [Concomitant]
     Indication: BLOOD CHOLESTEROL
  2. CARDIAC THERAPY [Concomitant]
     Indication: CARDIAC DISORDER
  3. ANTIHYPERTENSIVES [Concomitant]
     Indication: BLOOD PRESSURE
  4. HUMULIN R [Suspect]
     Dosage: UNK

REACTIONS (6)
  - EXPIRED DRUG ADMINISTERED [None]
  - SCAB [None]
  - NEOPLASM MALIGNANT [None]
  - RASH [None]
  - URTICARIA [None]
  - SKIN HAEMORRHAGE [None]
